FAERS Safety Report 25654832 (Version 1)
Quarter: 2025Q3

REPORT INFORMATION
  Report Type: Spontaneous
  Country: US (occurrence: None)
  Receive Date: 20250807
  Receipt Date: 20250807
  Transmission Date: 20251020
  Serious: Yes (Hospitalization)
  Sender: FDA-CTU
  Company Number: None

PATIENT
  Age: 85 Year
  Sex: Male

DRUGS (1)
  1. ENBREL [Suspect]
     Active Substance: ETANERCEPT
     Dosage: FREQUENCY : WEEKLY;?

REACTIONS (6)
  - Cellulitis [None]
  - Nausea [None]
  - Asthenia [None]
  - Dizziness [None]
  - Decreased appetite [None]
  - Pyrexia [None]
